FAERS Safety Report 6827302-3 (Version None)
Quarter: 2010Q3

REPORT INFORMATION
  Report Type: 
  Country: None (occurrence: None)
  Receive Date: 20100709
  Receipt Date: 20100505
  Transmission Date: 20110219
  Serious: No
  Sender: FDA-Public Use
  Company Number: IT-CELGENEUS-THAIT200600275

PATIENT
  Age: 64 Year
  Sex: Male

DRUGS (4)
  1. THALIDOMIDE [Suspect]
     Indication: AMYLOIDOSIS
     Route: 048
     Dates: start: 20040301, end: 20050101
  2. PREDNISOLONE [Concomitant]
     Indication: AMYLOIDOSIS
     Route: 065
     Dates: end: 20050101
  3. MELPHALAN HYDROCHLORIDE [Concomitant]
     Indication: AMYLOIDOSIS
     Route: 065
     Dates: end: 20050101
  4. AMIODARONE HCL [Concomitant]
     Indication: ARRHYTHMIA PROPHYLAXIS
     Route: 065

REACTIONS (2)
  - BRAIN NATRIURETIC PEPTIDE INCREASED [None]
  - DISEASE PROGRESSION [None]
